FAERS Safety Report 6933580-2 (Version None)
Quarter: 2010Q3

REPORT INFORMATION
  Report Type: 
  Country: None (occurrence: None)
  Receive Date: 20100820
  Receipt Date: 20100726
  Transmission Date: 20110219
  Serious: Yes (Hospitalization)
  Sender: FDA-Public Use
  Company Number: GB-BRISTOL-MYERS SQUIBB COMPANY-15244700

PATIENT
  Age: 70 Year
  Sex: Male
  Weight: 74 kg

DRUGS (2)
  1. CISPLATIN [Suspect]
     Indication: NON-SMALL CELL LUNG CANCER
     Dosage: LAST INF(3RD):21JUL10
     Route: 042
     Dates: start: 20100623
  2. GEMCITABINE [Suspect]
     Indication: NON-SMALL CELL LUNG CANCER
     Dosage: MOST RECENT INF: 21-JUL-2010.
     Route: 042
     Dates: start: 20100623

REACTIONS (1)
  - DYSPNOEA [None]
